FAERS Safety Report 15674850 (Version 2)
Quarter: 2019Q1

REPORT INFORMATION
  Report Type: Report from Study
  Country: IT (occurrence: IT)
  Receive Date: 20181130
  Receipt Date: 20190201
  Transmission Date: 20190417
  Serious: Yes (Hospitalization)
  Sender: FDA-Public Use
  Company Number: IT-TEVA-2018-IT-980381

PATIENT
  Age: 81 Year
  Sex: Female

DRUGS (7)
  1. PREGABALIN. [Concomitant]
     Active Substance: PREGABALIN
     Route: 065
  2. DOXAZOSIN [Concomitant]
     Active Substance: DOXAZOSIN\DOXAZOSIN MESYLATE
     Route: 065
  3. FUROSEMIDE. [Concomitant]
     Active Substance: FUROSEMIDE
     Route: 065
  4. ESOMEPRAZOLE SODIUM. [Concomitant]
     Active Substance: ESOMEPRAZOLE SODIUM
     Route: 065
  5. COUMADIN [Suspect]
     Active Substance: WARFARIN SODIUM
     Indication: ATRIAL FIBRILLATION
     Route: 048
     Dates: start: 20140226, end: 20180903
  6. ESCITALOPRAM OXALATE. [Suspect]
     Active Substance: ESCITALOPRAM OXALATE
     Indication: DEPRESSION
     Dosage: 10 MILLIGRAM DAILY;
     Route: 048
     Dates: start: 20180830
  7. PLAVIX [Suspect]
     Active Substance: CLOPIDOGREL BISULFATE
     Indication: EMBOLISM
     Dosage: 75 MILLIGRAM DAILY;
     Route: 048
     Dates: start: 20180626, end: 20180903

REACTIONS (4)
  - Subdural haematoma [Recovering/Resolving]
  - Abdominal wall haematoma [Recovering/Resolving]
  - Ecchymosis [Recovering/Resolving]
  - Cerebral haemorrhage [Recovering/Resolving]

NARRATIVE: CASE EVENT DATE: 20180903
